FAERS Safety Report 6152768-4 (Version None)
Quarter: 2009Q2

REPORT INFORMATION
  Report Type: 
  Country: None (occurrence: None)
  Receive Date: 20090409
  Receipt Date: 20090401
  Transmission Date: 20091009
  Serious: Yes (Life-Threatening, Hospitalization, Other)
  Sender: FDA-Public Use
  Company Number: 2009SP007095

PATIENT
  Age: 28 Year
  Sex: Male

DRUGS (2)
  1. PEG-INTRON [Suspect]
     Indication: HEPATITIS C
     Dosage: SC
     Route: 058
     Dates: start: 20080109, end: 20090303
  2. RIBAVIRIN [Suspect]
     Indication: HEPATITIS C
     Dosage: PO
     Route: 048
     Dates: start: 20090109

REACTIONS (11)
  - AMNESIA [None]
  - CONFUSIONAL STATE [None]
  - DEHYDRATION [None]
  - IMPRISONMENT [None]
  - IRRITABILITY [None]
  - MOOD ALTERED [None]
  - PYREXIA [None]
  - SHOCK [None]
  - SKIN DISCOLOURATION [None]
  - SWELLING [None]
  - VIOLENCE-RELATED SYMPTOM [None]
